FAERS Safety Report 25003420 (Version 4)
Quarter: 2025Q2

REPORT INFORMATION
  Report Type: Report from Study
  Country: US (occurrence: US)
  Receive Date: 20250224
  Receipt Date: 20250521
  Transmission Date: 20250716
  Serious: Yes (Hospitalization, Other)
  Sender: BAYER HEALTHCARE PHARMACEUTICALS INC.
  Company Number: US-BAYER-2024A137210

PATIENT
  Age: 74 Year
  Sex: Female
  Weight: 92.971 kg

DRUGS (26)
  1. ADEMPAS [Suspect]
     Active Substance: RIOCIGUAT
     Indication: Pulmonary arterial hypertension
     Route: 048
     Dates: start: 20240419
  2. ADEMPAS [Suspect]
     Active Substance: RIOCIGUAT
     Indication: Pulmonary arterial hypertension
     Dosage: 1.5 MG, TID
     Route: 048
  3. ADEMPAS [Suspect]
     Active Substance: RIOCIGUAT
     Indication: Pulmonary arterial hypertension
     Dosage: 1 MG, TID
     Route: 048
  4. ADEMPAS [Suspect]
     Active Substance: RIOCIGUAT
     Indication: Pulmonary arterial hypertension
  5. ADEMPAS [Suspect]
     Active Substance: RIOCIGUAT
     Indication: Pulmonary arterial hypertension
     Dosage: 1.5 MG, TID
     Route: 048
  6. ADEMPAS [Suspect]
     Active Substance: RIOCIGUAT
     Indication: Pulmonary arterial hypertension
     Dosage: 1.5 MG, TID
     Route: 048
  7. ADEMPAS [Suspect]
     Active Substance: RIOCIGUAT
     Indication: Pulmonary arterial hypertension
     Dosage: 2 MG, TID
     Route: 048
  8. ADEMPAS [Suspect]
     Active Substance: RIOCIGUAT
     Indication: Pulmonary arterial hypertension
     Dosage: 2 MG, TID
     Route: 048
  9. AMITRIPTYLINE HYDROCHLORIDE [Suspect]
     Active Substance: AMITRIPTYLINE HYDROCHLORIDE
  10. PREDNISOLONE ACETATE [Concomitant]
     Active Substance: PREDNISOLONE ACETATE
  11. DULOXETINE HYDROCHLORIDE [Concomitant]
     Active Substance: DULOXETINE HYDROCHLORIDE
  12. VITAMIN B12 [Concomitant]
     Active Substance: CYANOCOBALAMIN
  13. ESOMEPRAZOLE MAGNESIUM [Concomitant]
     Active Substance: ESOMEPRAZOLE MAGNESIUM
  14. VITAMIN D3 [Concomitant]
     Active Substance: CHOLECALCIFEROL
  15. ELIQUIS [Concomitant]
     Active Substance: APIXABAN
  16. POTASSIUM CHLORIDE [Concomitant]
     Active Substance: POTASSIUM CHLORIDE
  17. DICLOFENAC SODIUM [Concomitant]
     Active Substance: DICLOFENAC SODIUM
  18. OPSUMIT [Concomitant]
     Active Substance: MACITENTAN
  19. FENOFIBRATE [Concomitant]
     Active Substance: FENOFIBRATE
  20. TRAZODONE HCL [Concomitant]
     Active Substance: TRAZODONE HYDROCHLORIDE
  21. ATORVASTATIN CALCIUM [Concomitant]
     Active Substance: ATORVASTATIN CALCIUM
  22. CLONAZEPAM [Concomitant]
     Active Substance: CLONAZEPAM
  23. SPIRONOLACTONE [Concomitant]
     Active Substance: SPIRONOLACTONE
  24. BUMETANIDE [Concomitant]
     Active Substance: BUMETANIDE
  25. LEVOTHYROXINE SODIUM [Concomitant]
     Active Substance: LEVOTHYROXINE SODIUM
  26. IPRATROPIUM BROMIDE [Concomitant]
     Active Substance: IPRATROPIUM BROMIDE

REACTIONS (38)
  - Intestinal obstruction [Recovered/Resolved]
  - Constipation [Not Recovered/Not Resolved]
  - Pulmonary hypertension [Not Recovered/Not Resolved]
  - Atrial fibrillation [Not Recovered/Not Resolved]
  - Oxygen saturation decreased [Recovering/Resolving]
  - Heart rate increased [Not Recovered/Not Resolved]
  - Condition aggravated [None]
  - Orthostatic hypotension [Not Recovered/Not Resolved]
  - Fall [None]
  - Heart rate increased [None]
  - Blood pressure systolic increased [Not Recovered/Not Resolved]
  - Hypotension [None]
  - Somnolence [None]
  - Cough [None]
  - Faeces soft [None]
  - Weight increased [None]
  - Dyspnoea exertional [Not Recovered/Not Resolved]
  - Heart rate decreased [None]
  - Dizziness [None]
  - Fatigue [Not Recovered/Not Resolved]
  - Feeling abnormal [None]
  - Chest pain [None]
  - Muscle tightness [None]
  - Chest discomfort [None]
  - Dizziness [None]
  - Dyspnoea [None]
  - Nausea [None]
  - Abdominal distension [None]
  - Cough [None]
  - Productive cough [None]
  - Mucosal disorder [None]
  - Hypertension [None]
  - Vision blurred [Not Recovered/Not Resolved]
  - Palpitations [None]
  - Fluid retention [Not Recovered/Not Resolved]
  - Constipation [Not Recovered/Not Resolved]
  - Dizziness [None]
  - Oxygen therapy [None]

NARRATIVE: CASE EVENT DATE: 20240101
